FAERS Safety Report 6815431-X (Version None)
Quarter: 2010Q3

REPORT INFORMATION
  Report Type: 
  Country: None (occurrence: None)
  Receive Date: 20100702
  Receipt Date: 20100608
  Transmission Date: 20110219
  Serious: Yes (Hospitalization, Other)
  Sender: FDA-Public Use
  Company Number: PHHY2010FR38350

PATIENT
  Sex: Female

DRUGS (1)
  1. CGP 57148B T35717+ [Suspect]
     Indication: CHRONIC MYELOID LEUKAEMIA

REACTIONS (7)
  - ABDOMINAL DISTENSION [None]
  - BILIARY DILATATION [None]
  - CHOLECYSTECTOMY [None]
  - DEHYDRATION [None]
  - DIARRHOEA [None]
  - FOREIGN BODY [None]
  - GASTROINTESTINAL DISORDER [None]
